FAERS Safety Report 16145950 (Version 1)
Quarter: 2019Q2

REPORT INFORMATION
  Report Type: Spontaneous
  Country: US (occurrence: US)
  Receive Date: 20190402
  Receipt Date: 20190402
  Transmission Date: 20190711
  Serious: Yes (Other)
  Sender: FDA-Public Use
  Company Number: US-JNJFOC-20190311246

PATIENT
  Age: 28 Year
  Sex: Male
  Weight: 127.01 kg

DRUGS (2)
  1. LISTERINE ULTRACLEAN ANTISEPTIC FRESH CITRUS [Suspect]
     Active Substance: EUCALYPTOL\MENTHOL\METHYL SALICYLATE\THYMOL
     Indication: DENTAL DISORDER PROPHYLAXIS
     Dosage: PRODUCT DOSE OR QUANTITY: A CAPFUL 1 TIME
     Route: 048
     Dates: start: 20190307, end: 20190307
  2. ADVIL [Concomitant]
     Active Substance: IBUPROFEN
     Indication: BACK PAIN
     Dosage: AS NEEDED AS PER PACKAGE  DIRECTION
     Route: 065

REACTIONS (2)
  - Accidental exposure to product [Unknown]
  - Facial paralysis [Not Recovered/Not Resolved]

NARRATIVE: CASE EVENT DATE: 20190307
